FAERS Safety Report 5878688-8 (Version None)
Quarter: 2008Q3

REPORT INFORMATION
  Report Type: 
  Country: None (occurrence: None)
  Receive Date: 20080910
  Receipt Date: 20080826
  Transmission Date: 20090109
  Serious: Yes (Death, Hospitalization, Other)
  Sender: FDA-Public Use
  Company Number: 2006US001499

PATIENT
  Age: 58 Year
  Sex: Male

DRUGS (18)
  1. PROGRAF [Suspect]
     Indication: LIVER TRANSPLANT
     Dosage: 1 MG, UID/QD, ORAL, 0.5 MG, BID
     Route: 048
     Dates: start: 20051128, end: 20061017
  2. PROGRAF [Suspect]
     Indication: LIVER TRANSPLANT
     Dosage: 1 MG, UID/QD, ORAL, 0.5 MG, BID
     Route: 048
     Dates: start: 20060628
  3. MYCOPHENOLATE MOFETIL [Suspect]
     Indication: LIVER TRANSPLANT
     Dosage: 1000 MG, BID, ORAL, 500 MG, BID
     Route: 048
     Dates: start: 20051126, end: 20061024
  4. MYCOPHENOLATE MOFETIL [Suspect]
     Indication: LIVER TRANSPLANT
     Dosage: 1000 MG, BID, ORAL, 500 MG, BID
     Route: 048
     Dates: start: 20060627
  5. COLACE (DOCUSATE SODIUM) [Concomitant]
  6. WELLBUTRIN [Concomitant]
  7. URSODIOL [Concomitant]
  8. PROZAC [Concomitant]
  9. MULTIVITAMIN [Concomitant]
  10. PEGASYS [Concomitant]
  11. TERAZOSIN HCL [Concomitant]
  12. LORCET (HYDROCODONE BITARTRATE) [Concomitant]
  13. NEXIUM [Concomitant]
  14. MIDODRINE HYDROCHLORIDE [Concomitant]
  15. AQUAMEPHYTOIN (PHYTOMENADIONE) [Concomitant]
  16. LEVAQUIN [Concomitant]
  17. TOPROL-XL [Concomitant]
  18. SULTOPRIDE (SULTOPRIDE) [Concomitant]

REACTIONS (13)
  - ENTEROCOCCAL BACTERAEMIA [None]
  - GASTROINTESTINAL HAEMORRHAGE [None]
  - HAEMATOCRIT DECREASED [None]
  - HAEMODIALYSIS [None]
  - HAEMOGLOBIN DECREASED [None]
  - HAEMORRHOIDAL HAEMORRHAGE [None]
  - LIVER FUNCTION TEST ABNORMAL [None]
  - LIVER TRANSPLANT REJECTION [None]
  - MULTI-ORGAN FAILURE [None]
  - PLATELET COUNT DECREASED [None]
  - RENAL FAILURE [None]
  - VIRAL LOAD INCREASED [None]
  - WHITE BLOOD CELL COUNT DECREASED [None]
